FAERS Safety Report 19122758 (Version 1)
Quarter: 2021Q2

REPORT INFORMATION
  Report Type: Report from Study
  Country: US (occurrence: US)
  Receive Date: 20210412
  Receipt Date: 20210412
  Transmission Date: 20210717
  Serious: Yes (Other)
  Sender: FDA-Public Use
  Company Number: US-PFIZER INC-2021375430

PATIENT
  Age: 67 Year
  Sex: Male

DRUGS (1)
  1. FLUDARABINE PHOSPHATE. [Suspect]
     Active Substance: FLUDARABINE PHOSPHATE
     Indication: WALDENSTROM^S MACROGLOBULINAEMIA
     Dosage: 30 MG/M2(OVER 30 MINUTES DAILY FOR 5 CONSECUTIVE DAYS. COURSES WERE REPEATED EVERY 4 WEEKS, )
     Route: 042

REACTIONS (2)
  - Hepatitis non-A non-B [Unknown]
  - Tooth abscess [Unknown]
